FAERS Safety Report 5863801 (Version 20)
Quarter: 2014Q1

REPORT INFORMATION
  Report Type: Spontaneous
  Country: US (occurrence: US)
  Receive Date: 20050819
  Receipt Date: 20140322
  Transmission Date: 20141002
  Serious: Yes (Death, Hospitalization, Other)
  Sender: FDA-Public Use
  Company Number: PHEH2005US08930

PATIENT
  Age: 64 Year
  Sex: Female

DRUGS (17)
  1. AREDIA [Suspect]
     Indication: PLASMA CELL MYELOMA
     Dosage: 90 MG, QMO
     Route: 042
  2. ZOMETA [Suspect]
     Route: 042
  3. K-DUR [Concomitant]
  4. COLACE [Concomitant]
  5. FISH OIL [Concomitant]
  6. GUAIFENESIN [Concomitant]
  7. RANITIDINE [Concomitant]
  8. METFORMIN [Concomitant]
  9. VESICARE [Concomitant]
  10. SPIRIVA [Concomitant]
  11. ADVAIR DISKUS [Concomitant]
  12. NYSTATIN [Concomitant]
  13. ZANTAC [Concomitant]
  14. RADIATION [Concomitant]
  15. FLUTICASONE [Concomitant]
  16. TOLTERODINE [Concomitant]
  17. SERTRALINE HYDROCHLORIDE [Concomitant]

REACTIONS (106)
  - Chronic obstructive pulmonary disease [Fatal]
  - Pneumonia [Unknown]
  - Pulmonary congestion [Unknown]
  - Pleural effusion [Unknown]
  - Osteonecrosis of jaw [Unknown]
  - Cardiac failure congestive [Unknown]
  - Haematuria [Unknown]
  - Varicose vein [Unknown]
  - Asthma [Unknown]
  - Cataract [Unknown]
  - Vision blurred [Unknown]
  - Gait disturbance [Unknown]
  - Aortic arteriosclerosis [Unknown]
  - Tricuspid valve incompetence [Unknown]
  - Pain [Unknown]
  - Tibia fracture [Unknown]
  - Femur fracture [Unknown]
  - Nephrolithiasis [Unknown]
  - Microcytic anaemia [Unknown]
  - Loss of consciousness [Unknown]
  - Pulmonary fibrosis [Unknown]
  - Glaucoma [Unknown]
  - Mitral valve prolapse [Unknown]
  - Gingival bleeding [Unknown]
  - Mastication disorder [Unknown]
  - Hip fracture [Unknown]
  - Dry eye [Unknown]
  - Wheezing [Unknown]
  - Dyspnoea [Unknown]
  - Arthritis [Unknown]
  - Arthralgia [Unknown]
  - Musculoskeletal stiffness [Unknown]
  - Corneal oedema [Unknown]
  - Ulcerative keratitis [Unknown]
  - Uveitis [Unknown]
  - Keratitis [Unknown]
  - Tachypnoea [Unknown]
  - Hypercapnia [Unknown]
  - Herpes zoster [Unknown]
  - Osteopenia [Unknown]
  - Fibula fracture [Unknown]
  - Calcinosis [Unknown]
  - Foot fracture [Unknown]
  - Joint dislocation [Unknown]
  - Haemoptysis [Unknown]
  - Sinus tachycardia [Unknown]
  - Depression [Unknown]
  - Deep vein thrombosis [Unknown]
  - Renal failure [Unknown]
  - Respiratory failure [Unknown]
  - Haematoma [Unknown]
  - Stomatitis [Unknown]
  - Left atrial dilatation [Unknown]
  - Splenomegaly [Unknown]
  - Pneumothorax [Unknown]
  - Anaphylactic shock [Unknown]
  - Encephalopathy [Unknown]
  - Spinal osteoarthritis [Unknown]
  - Electrocardiogram T wave abnormal [Unknown]
  - Cerebral atrophy [Unknown]
  - Hypothyroidism [Unknown]
  - Renal atrophy [Unknown]
  - Ascites [Unknown]
  - Lung infiltration [Unknown]
  - Intestinal stenosis [Unknown]
  - Coagulopathy [Unknown]
  - Pulmonary hypertension [Unknown]
  - Hypoxia [Unknown]
  - Pleuritic pain [Unknown]
  - Left ventricular hypertrophy [Unknown]
  - Thrombophlebitis [Unknown]
  - Incontinence [Unknown]
  - Local swelling [Unknown]
  - Epistaxis [Unknown]
  - Insomnia [Unknown]
  - Hypokalaemia [Unknown]
  - Hypomagnesaemia [Unknown]
  - Muscle spasms [Unknown]
  - Abdominal discomfort [Unknown]
  - Constipation [Unknown]
  - Cardiomegaly [Unknown]
  - Bone lesion [Unknown]
  - Neutropenia [Unknown]
  - Bone loss [Unknown]
  - Exposed bone in jaw [Unknown]
  - Pain in jaw [Unknown]
  - Gingival disorder [Unknown]
  - Intervertebral disc space narrowing [Unknown]
  - Pathological fracture [Unknown]
  - Oral disorder [Unknown]
  - Rib fracture [Unknown]
  - Bone pain [Unknown]
  - Pneumonitis [Unknown]
  - Pancytopenia [Unknown]
  - Sepsis [Unknown]
  - Skin lesion [Unknown]
  - Obstructive airways disorder [Unknown]
  - Thrombosis [Unknown]
  - Wound [Recovering/Resolving]
  - Urinary tract infection [Unknown]
  - Osteolysis [Unknown]
  - Emphysema [Unknown]
  - Rib deformity [Unknown]
  - Diverticulum [Unknown]
  - Vascular calcification [Unknown]
  - Interstitial lung disease [Unknown]
